FAERS Safety Report 4731506-3 (Version None)
Quarter: 2005Q3

REPORT INFORMATION
  Report Type: 
  Country: None (occurrence: None)
  Receive Date: 20050721
  Receipt Date: 20050523
  Transmission Date: 20060218
  Serious: Yes (Other)
  Sender: FDA-Public Use
  Company Number: 2005076665

PATIENT
  Age: 31 Year
  Sex: Male
  Weight: 68.0396 kg

DRUGS (3)
  1. RELPAX [Suspect]
     Indication: HEADACHE
     Dosage: (40 MG, UNKNOWN), ORAL
     Route: 048
     Dates: start: 20050101
  2. KEPPRA [Concomitant]
  3. LORTAB [Concomitant]

REACTIONS (3)
  - CONVULSION [None]
  - DRUG INEFFECTIVE [None]
  - HEADACHE [None]
